FAERS Safety Report 7178701-4 (Version None)
Quarter: 2010Q4

REPORT INFORMATION
  Report Type: 
  Country: None (occurrence: None)
  Receive Date: 20101221
  Receipt Date: 20100113
  Transmission Date: 20110411
  Serious: No
  Sender: FDA-Public Use
  Company Number: 2010BI001590

PATIENT
  Age: 35 Year
  Sex: Female

DRUGS (1)
  1. TYSABRI [Suspect]
     Indication: MULTIPLE SCLEROSIS
     Route: 042
     Dates: start: 20091124

REACTIONS (8)
  - FATIGUE [None]
  - GAIT DISTURBANCE [None]
  - HERPES VIRUS INFECTION [None]
  - HYPOAESTHESIA [None]
  - MOBILITY DECREASED [None]
  - ORAL HERPES [None]
  - SPEECH DISORDER [None]
  - VERTIGO [None]
